FAERS Safety Report 8393365-X (Version None)
Quarter: 2012Q2

REPORT INFORMATION
  Report Type: 
  Country: None (occurrence: None)
  Receive Date: 20120529
  Receipt Date: 20120515
  Transmission Date: 20120825
  Serious: Yes (Death)
  Sender: FDA-Public Use
  Company Number: IT-CELGENEUS-083-21880-12032862

PATIENT

DRUGS (2)
  1. REVLIMID [Suspect]
     Indication: NON-HODGKIN'S LYMPHOMA
     Dosage: 15 MILLIGRAM
     Route: 048
     Dates: start: 20090610, end: 20090630
  2. PREDNISONE TAB [Concomitant]
     Route: 065

REACTIONS (2)
  - NON-HODGKIN'S LYMPHOMA [None]
  - DEATH [None]
